FAERS Safety Report 21200810 (Version 1)
Quarter: 2022Q3

REPORT INFORMATION
  Report Type: Spontaneous
  Country: AU (occurrence: AU)
  Receive Date: 20220811
  Receipt Date: 20220811
  Transmission Date: 20221027
  Serious: Yes (Other)
  Sender: FDA-Public Use
  Company Number: AU-SA-2022SA319816

PATIENT
  Age: 48 Year
  Sex: Female

DRUGS (2)
  1. ALEMTUZUMAB [Suspect]
     Active Substance: ALEMTUZUMAB
     Indication: Multiple sclerosis
     Dosage: UNK
     Dates: start: 201607
  2. ALEMTUZUMAB [Suspect]
     Active Substance: ALEMTUZUMAB
     Dosage: UNK
     Dates: start: 201707

REACTIONS (4)
  - Acquired haemophilia [Recovered/Resolved]
  - Contusion [Recovered/Resolved]
  - Mucosal haemorrhage [Recovered/Resolved]
  - Autoimmune thyroid disorder [Unknown]

NARRATIVE: CASE EVENT DATE: 20190401
